FAERS Safety Report 13177109 (Version 2)
Quarter: 2017Q3

REPORT INFORMATION
  Report Type: Report from Study
  Country: US (occurrence: US)
  Receive Date: 20170201
  Receipt Date: 20170731
  Transmission Date: 20171127
  Serious: No
  Sender: FDA-Public Use
  Company Number: US-EXELIXIS-CABO-16007098

PATIENT
  Age: 60 Year
  Sex: Male

DRUGS (8)
  1. CABOMETYX [Suspect]
     Active Substance: CABOZANTINIB S-MALATE
     Indication: RENAL CANCER
     Dosage: 60 MG, QD
     Route: 048
     Dates: start: 20160723
  2. ONDANSETRON [Concomitant]
     Active Substance: ONDANSETRON
  3. ALLOPURINOL. [Concomitant]
     Active Substance: ALLOPURINOL
  4. ATENOLOL. [Concomitant]
     Active Substance: ATENOLOL
  5. DIAZEPAM. [Concomitant]
     Active Substance: DIAZEPAM
  6. GABAPENTIN. [Concomitant]
     Active Substance: GABAPENTIN
  7. AMLODIPINE [Concomitant]
     Active Substance: AMLODIPINE BESYLATE
  8. MAXZIDE [Concomitant]
     Active Substance: HYDROCHLOROTHIAZIDE\TRIAMTERENE

REACTIONS (1)
  - Hypersomnia [Unknown]

NARRATIVE: CASE EVENT DATE: 20160901
